FAERS Safety Report 7363571-1 (Version None)
Quarter: 2011Q1

REPORT INFORMATION
  Report Type: 
  Country: None (occurrence: None)
  Receive Date: 20110321
  Receipt Date: 20110316
  Transmission Date: 20110831
  Serious: Yes (Other)
  Sender: FDA-Public Use
  Company Number: CO-JNJFOC-20100900843

PATIENT
  Age: 80 Year
  Sex: Female

DRUGS (2)
  1. GALANTAMINE HYDROBROMIDE [Suspect]
     Indication: DEMENTIA
     Route: 065
  2. GALANTAMINE HYDROBROMIDE [Suspect]
     Indication: DEMENTIA ALZHEIMER'S TYPE
     Route: 065

REACTIONS (1)
  - ARRHYTHMIA [None]
